FAERS Safety Report 10464558 (Version 1)
Quarter: 2014Q3

REPORT INFORMATION
  Report Type: Spontaneous
  Country: FR (occurrence: None)
  Receive Date: 20140917
  Receipt Date: 20140917
  Transmission Date: 20150326
  Serious: Yes (Other)
  Sender: FDA-Public Use
  Company Number: 2528203

PATIENT
  Sex: Female

DRUGS (3)
  1. 5-FLUOROURACIL /00098801/ [Suspect]
     Active Substance: FLUOROURACIL
     Indication: OVARIAN GRANULOSA CELL TUMOUR
     Route: 041
  2. LEUCOVORIN /00566701/ [Concomitant]
     Active Substance: LEUCOVORIN
  3. OXALIPLATIN. [Suspect]
     Active Substance: OXALIPLATIN
     Indication: OVARIAN GRANULOSA CELL TUMOUR
     Dosage: INTRAPERITONEAL

REACTIONS (5)
  - Potentiating drug interaction [None]
  - Brachial plexopathy [None]
  - Device related infection [None]
  - Thrombocytopenia [None]
  - Intra-abdominal haematoma [None]
